FAERS Safety Report 19427844 (Version 1)
Quarter: 2021Q2

REPORT INFORMATION
  Report Type: Spontaneous
  Country: US (occurrence: US)
  Receive Date: 20210616
  Receipt Date: 20210616
  Transmission Date: 20210717
  Serious: No
  Sender: FDA-Public Use
  Company Number: US-ROCHE-2665259

PATIENT
  Age: 65 Year
  Sex: Female
  Weight: 72.19 kg

DRUGS (1)
  1. ACTEMRA [Suspect]
     Active Substance: TOCILIZUMAB
     Indication: STILL^S DISEASE
     Route: 042
     Dates: start: 20170101

REACTIONS (5)
  - Intentional product use issue [Unknown]
  - Body temperature decreased [Unknown]
  - Off label use [Unknown]
  - Illness [Unknown]
  - Feeling cold [Unknown]

NARRATIVE: CASE EVENT DATE: 201701
